FAERS Safety Report 23704890 (Version 1)
Quarter: 2024Q2

REPORT INFORMATION
  Report Type: Spontaneous
  Country: US (occurrence: US)
  Receive Date: 20240404
  Receipt Date: 20240404
  Transmission Date: 20240716
  Serious: No
  Sender: FDA-Public Use
  Company Number: US-TEVA-VS-3173087

PATIENT
  Age: 25 Year
  Sex: Male

DRUGS (1)
  1. ACETAMINOPHEN\DEXTROAMPHETAMINE [Suspect]
     Active Substance: ACETAMINOPHEN\DEXTROAMPHETAMINE
     Indication: Attention deficit hyperactivity disorder
     Dosage: SALT
     Route: 065

REACTIONS (2)
  - Nausea [Unknown]
  - Drug ineffective [Unknown]
